FAERS Safety Report 8200426-4 (Version None)
Quarter: 2012Q1

REPORT INFORMATION
  Report Type: 
  Country: None (occurrence: None)
  Receive Date: 20120312
  Receipt Date: 20120302
  Transmission Date: 20120608
  Serious: Yes (Other)
  Sender: FDA-Public Use
  Company Number: US-CELGENEUS-163-21880-12030351

PATIENT
  Sex: Female
  Weight: 62.3 kg

DRUGS (10)
  1. NEURONTIN [Concomitant]
     Route: 065
  2. REVLIMID [Suspect]
     Dosage: 10 MILLIGRAM
     Route: 048
     Dates: start: 20120113
  3. BENADRYL [Concomitant]
     Route: 065
  4. LEVAQUIN [Concomitant]
     Route: 065
  5. PROTONIX [Concomitant]
     Route: 065
  6. DILAUDID [Concomitant]
     Route: 065
  7. TUSSEND [Concomitant]
     Route: 065
  8. ASPIRIN [Concomitant]
     Route: 065
  9. MINOCYCLINE HCL [Concomitant]
     Route: 065
  10. DAPSONE [Concomitant]
     Route: 065

REACTIONS (2)
  - DRUG INEFFECTIVE [None]
  - LYMPHADENOPATHY [None]
